FAERS Safety Report 18043630 (Version 1)
Quarter: 2020Q3

REPORT INFORMATION
  Report Type: Spontaneous
  Country: GB (occurrence: GB)
  Receive Date: 20200720
  Receipt Date: 20200720
  Transmission Date: 20201103
  Serious: Yes (Hospitalization)
  Sender: FDA-Public Use
  Company Number: GB-MYLANLABS-2020M1065463

PATIENT
  Age: 51 Year
  Sex: Male

DRUGS (1)
  1. CLOZARIL [Suspect]
     Active Substance: CLOZAPINE
     Indication: SCHIZOPHRENIA
     Dosage: UNK
     Route: 048
     Dates: start: 20041008

REACTIONS (6)
  - Product dose omission issue [Unknown]
  - Product supply issue [Unknown]
  - Hospitalisation [Unknown]
  - Dizziness [Unknown]
  - Back pain [Unknown]
  - Patient elopement [Unknown]

NARRATIVE: CASE EVENT DATE: 20200710
